FAERS Safety Report 5993975-0 (Version None)
Quarter: 2008Q4

REPORT INFORMATION
  Report Type: 
  Country: None (occurrence: None)
  Receive Date: 20081212
  Receipt Date: 20081209
  Transmission Date: 20090506
  Serious: Yes (Other)
  Sender: FDA-Public Use
  Company Number: D0059396A

PATIENT

DRUGS (1)
  1. ELONTRIL [Suspect]
     Route: 048

REACTIONS (1)
  - NO ADVERSE EVENT [None]
